FAERS Safety Report 4853087-6 (Version None)
Quarter: 2005Q4

REPORT INFORMATION
  Report Type: 
  Country: None (occurrence: None)
  Receive Date: 20051214
  Receipt Date: 20051202
  Transmission Date: 20060501
  Serious: Yes (Death, Other)
  Sender: FDA-Public Use
  Company Number: JP-BRISTOL-MYERS SQUIBB COMPANY-13210661

PATIENT
  Age: 53 Year
  Sex: Female

DRUGS (3)
  1. ENDOXAN [Suspect]
     Indication: BREAST CANCER RECURRENT
     Route: 042
     Dates: start: 20050928, end: 20051026
  2. FARMORUBICIN [Suspect]
     Indication: BREAST CANCER RECURRENT
     Route: 042
     Dates: start: 20050928, end: 20051026
  3. HYSRON [Concomitant]

REACTIONS (3)
  - NEUTROPENIA [None]
  - RESPIRATORY FAILURE [None]
  - WHITE BLOOD CELL COUNT DECREASED [None]
